FAERS Safety Report 4569734-2 (Version None)
Quarter: 2005Q1

REPORT INFORMATION
  Report Type: 
  Country: None (occurrence: None)
  Receive Date: 20050131
  Receipt Date: 20050118
  Transmission Date: 20050727
  Serious: Yes (Hospitalization)
  Sender: FDA-Public Use
  Company Number: 211802

PATIENT
  Age: 37 Year
  Sex: Male

DRUGS (4)
  1. MABTHERA (RITUXIMAB) CONC FOR SOLUTION FOR INFUSION [Suspect]
     Indication: LYMPHOMA
     Dosage: 800 MG Q3W INTRAVENOUS
     Route: 042
     Dates: start: 20041229
  2. ROFERON-A [Suspect]
     Indication: LYMPHOMA
     Dosage: 4.5 MIU QD SUBCUTANEOUS
     Route: 058
     Dates: start: 20041215
  3. ACETAMINOPHEN [Concomitant]
  4. SUMATRIPTAN SUCCINATE [Concomitant]

REACTIONS (4)
  - BACTERIA URINE IDENTIFIED [None]
  - C-REACTIVE PROTEIN INCREASED [None]
  - FEBRILE NEUTROPENIA [None]
  - WHITE BLOOD CELL COUNT DECREASED [None]
